FAERS Safety Report 19855071 (Version 1)
Quarter: 2021Q3

REPORT INFORMATION
  Report Type: Spontaneous
  Country: FR (occurrence: FR)
  Receive Date: 20210920
  Receipt Date: 20210920
  Transmission Date: 20211014
  Serious: Yes (Life-Threatening)
  Sender: FDA-Public Use
  Company Number: FR-TEVA-2021-FR-1953620

PATIENT
  Age: 69 Year
  Sex: Female
  Weight: 61 kg

DRUGS (21)
  1. PACLITAXEL. [Suspect]
     Active Substance: PACLITAXEL
     Indication: OVARIAN EPITHELIAL CANCER
     Route: 041
     Dates: start: 20210519, end: 20210519
  2. VENLAFAXINE [Suspect]
     Active Substance: VENLAFAXINE HYDROCHLORIDE
     Indication: DEPRESSION
     Dosage: UNIT DOSE :75 MG ,THERAPY START DATE :NOT ASKED
     Route: 048
  3. TAZOBACTAM [Suspect]
     Active Substance: TAZOBACTAM
     Indication: PSEUDOMONAS INFECTION
     Dosage: 4 GRAM ,THERAPY END DATE: NOT ASKED
     Route: 041
     Dates: start: 20210617
  4. TRANSIPEG 5,9 G, POUDRE POUR SOLUTION BUVABLE EN SACHET [Concomitant]
     Indication: CONSTIPATION
     Dosage: 2 DOSAGE FORMS ,THERAPY START DATE :NOT ASKED
     Route: 048
  5. ACICLOVIR [Suspect]
     Active Substance: ACYCLOVIR
     Indication: NERVOUS SYSTEM DISORDER
     Dosage: THERAPY START DATE:NOT ASKED,THERAPY END DATE:NOT ASKED
     Route: 041
  6. PIPERACILLINE BASE [Suspect]
     Active Substance: PIPERACILLIN SODIUM
     Indication: PSEUDOMONAS INFECTION
     Route: 041
     Dates: start: 20210617, end: 20210707
  7. LEVOTHYROX 125 MICROGRAMMES, COMPRIME SECABLE [Concomitant]
     Active Substance: LEVOTHYROXINE SODIUM
     Indication: HYPOTHYROIDISM
     Dosage: 125 MCG, THERAPY START DATE: NOT ASKED
     Route: 041
  8. LOVENOX [Concomitant]
     Active Substance: ENOXAPARIN SODIUM
     Indication: ANTICOAGULANT THERAPY
     Dosage: 1 DOSAGE FORMS
     Route: 058
     Dates: start: 20210624
  9. CARBOPLATINE [Suspect]
     Active Substance: CARBOPLATIN
     Route: 041
     Dates: start: 20210611, end: 20210611
  10. RIVOTRIL [Suspect]
     Active Substance: CLONAZEPAM
     Indication: STATUS EPILEPTICUS
     Dosage: 3 MG
     Dates: start: 20210623, end: 20210623
  11. VIMPAT [Suspect]
     Active Substance: LACOSAMIDE
     Indication: EPILEPSY
     Dosage: 100 MG
     Route: 041
     Dates: start: 20210617
  12. CANDESARTAN CILEXETIL. [Concomitant]
     Active Substance: CANDESARTAN CILEXETIL
     Indication: HYPERTENSION
     Dosage: 16 MG ,THERAPY START DATE:NOT ASKED
     Route: 048
  13. AMLODIPINE [Concomitant]
     Active Substance: AMLODIPINE BESYLATE
     Indication: HYPERTENSION
     Dosage: 5 MG ,THERAPY START DATE: NOT ASKED
     Route: 048
  14. BISOPROLOL (FUMARATE ACIDE DE) [Concomitant]
     Active Substance: BISOPROLOL FUMARATE
     Indication: TACHYCARDIA
     Dosage: 2.5 MG ,THERAPY START DATE:NOT ASKED
     Route: 048
  15. CARBOPLATINE [Suspect]
     Active Substance: CARBOPLATIN
     Indication: OVARIAN EPITHELIAL CANCER
     Route: 041
     Dates: start: 20210519, end: 20210519
  16. PACLITAXEL. [Suspect]
     Active Substance: PACLITAXEL
     Route: 041
     Dates: start: 20210611, end: 20210611
  17. KEPPRA [Suspect]
     Active Substance: LEVETIRACETAM
     Indication: STATUS EPILEPTICUS
     Dosage: 500 MG
     Route: 041
     Dates: start: 20210623, end: 20210623
  18. HYDROCHLOROTHIAZIDE. [Concomitant]
     Active Substance: HYDROCHLOROTHIAZIDE
     Indication: HYPERTENSION
     Dosage: 25 MG ,THERAPY START DATE :NOT ASKED
     Route: 048
  19. DEPAKINE 400 MG/4 ML, PREPARATION INJECTABLE POUR VOIE I.V. [Suspect]
     Active Substance: VALPROATE SODIUM
     Indication: STATUS EPILEPTICUS
     Dosage: 400 MG
     Route: 041
     Dates: start: 20210623, end: 20210623
  20. TEGRETOL [Suspect]
     Active Substance: CARBAMAZEPINE
     Indication: STATUS EPILEPTICUS
     Dosage: 300 MG
     Route: 048
     Dates: start: 20210625, end: 20210708
  21. LANSOPRAZOLE. [Concomitant]
     Active Substance: LANSOPRAZOLE
     Dosage: 15 MG ,THERAPY START DATE :NOT ASKED
     Route: 048

REACTIONS (1)
  - Agranulocytosis [Recovered/Resolved]

NARRATIVE: CASE EVENT DATE: 20210707
